FAERS Safety Report 10669574 (Version 1)
Quarter: 2014Q4

REPORT INFORMATION
  Report Type: Spontaneous
  Country: US (occurrence: US)
  Receive Date: 20141222
  Receipt Date: 20141222
  Transmission Date: 20150529
  Serious: No
  Sender: FDA-Public Use
  Company Number: US-SA-2014SA167872

PATIENT
  Age: 50 Year
  Sex: Male

DRUGS (14)
  1. AMITRIPTYLINE [Concomitant]
     Active Substance: AMITRIPTYLINE
  2. ACYCLOVIR. [Concomitant]
     Active Substance: ACYCLOVIR
  3. BACLOFEN. [Concomitant]
     Active Substance: BACLOFEN
  4. OXYCODONE [Concomitant]
     Active Substance: OXYCODONE
  5. METHYLPHENIDATE [Concomitant]
     Active Substance: METHYLPHENIDATE
  6. TRIAMTERENE. [Concomitant]
     Active Substance: TRIAMTERENE
  7. PRAMIPEXOLE [Concomitant]
     Active Substance: PRAMIPEXOLE
  8. DIAZEPAM. [Concomitant]
     Active Substance: DIAZEPAM
  9. GABAPENTIN. [Concomitant]
     Active Substance: GABAPENTIN
  10. FLUOXETINE [Concomitant]
     Active Substance: FLUOXETINE\FLUOXETINE HYDROCHLORIDE
  11. METOPROLOL [Concomitant]
     Active Substance: METOPROLOL
  12. DIAZEPAM. [Concomitant]
     Active Substance: DIAZEPAM
  13. AUBAGIO [Suspect]
     Active Substance: TERIFLUNOMIDE
     Route: 065
  14. ZOLPIDEM [Concomitant]
     Active Substance: ZOLPIDEM\ZOLPIDEM TARTRATE

REACTIONS (1)
  - Fall [Unknown]
